FAERS Safety Report 21202111 (Version 1)
Quarter: 2022Q3

REPORT INFORMATION
  Report Type: Spontaneous
  Country: US (occurrence: US)
  Receive Date: 20220811
  Receipt Date: 20220811
  Transmission Date: 20221027
  Serious: No
  Sender: FDA-Public Use
  Company Number: US-ANIPHARMA-2022-US-013580

PATIENT
  Age: 71 Year
  Sex: Male
  Weight: 85.28 kg

DRUGS (5)
  1. CORTICOTROPIN [Suspect]
     Active Substance: CORTICOTROPIN
     Indication: Product used for unknown indication
     Dosage: 1 INJECTION TWICE WEEKLY
     Route: 030
     Dates: start: 20220520
  2. METOPROLOL [Concomitant]
     Active Substance: METOPROLOL
     Route: 065
  3. ENTRESTO [Concomitant]
     Active Substance: SACUBITRIL\VALSARTAN
     Route: 065
  4. WARFARIN [Concomitant]
     Active Substance: WARFARIN
     Route: 065
  5. VITAMIN B3 [Concomitant]
     Active Substance: NIACIN
     Route: 065

REACTIONS (1)
  - Generalised oedema [Not Recovered/Not Resolved]
